FAERS Safety Report 4871976-3 (Version None)
Quarter: 2006Q1

REPORT INFORMATION
  Report Type: 
  Country: None (occurrence: None)
  Receive Date: 20060104
  Receipt Date: 20051221
  Transmission Date: 20060701
  Serious: Yes (Death)
  Sender: FDA-Public Use
  Company Number: US-ROCHE-429572

PATIENT
  Age: 58 Year
  Sex: Female

DRUGS (14)
  1. COPEGUS [Suspect]
     Indication: HEPATITIS C
     Route: 048
     Dates: start: 20050918
  2. PEG-INTRON [Suspect]
     Indication: HEPATITIS C
     Dosage: GIVEN AS INJECTABLE POWDER
     Route: 065
     Dates: start: 20050918
  3. ASPIRIN [Concomitant]
     Dosage: DRUG NAM REPORTED AS ASPIRIN BABY CHEWABLE TABLETS 81MG
     Route: 048
  4. ATENOLOL [Concomitant]
     Route: 048
  5. AZMACORT [Concomitant]
     Dosage: DRUG NAME REPORTED AS AZMACORT AEROSOL SOLUTION 100 MCT/ACT INHALATION
  6. CITALOPRAM HYDROBROMIDE [Concomitant]
     Route: 048
  7. COMBIVENT [Concomitant]
     Dosage: DRUG NAME REPORTED AS COMBIVENT AEROSOL SOLUTION 103-18MCT/ACT INHALATION
     Route: 055
  8. DUONEB [Concomitant]
     Dosage: DRUG NAME REPORTED AS DUONEB INHALATION SOLUTION 2.5-0.5MG/3ML
     Route: 055
  9. FUROSEMIDE [Concomitant]
     Route: 048
  10. IBUPROFEN [Concomitant]
     Dosage: DRUG NAME REPORTED AS IBUPROFEN TABLETS 600MG ORAL
     Route: 048
  11. LISINOPRIL [Concomitant]
     Route: 048
  12. NAPROXEN [Concomitant]
     Route: 048
  13. PRILOSEC [Concomitant]
     Route: 048
  14. VERAPAMIL HYDROCHLORIDE [Concomitant]
     Dosage: DRUG NAME REPORTED AS VERAPAMIL HYDROCHLORIDE EXTENDED RELEASE TABLET 240 MG ORAL
     Route: 048

REACTIONS (2)
  - DELUSION [None]
  - SEPSIS [None]
